FAERS Safety Report 24887209 (Version 1)
Quarter: 2025Q1

REPORT INFORMATION
  Report Type: Spontaneous
  Country: US (occurrence: US)
  Receive Date: 20250127
  Receipt Date: 20250127
  Transmission Date: 20250409
  Serious: No
  Sender: ELI LILLY AND COMPANY
  Company Number: US-ELI_LILLY_AND_COMPANY-US202501010130

PATIENT
  Sex: Female

DRUGS (1)
  1. TIRZEPATIDE [Suspect]
     Active Substance: TIRZEPATIDE
     Indication: Weight control
     Route: 048

REACTIONS (6)
  - Off label use [Unknown]
  - Product tampering [Unknown]
  - Incorrect route of product administration [Unknown]
  - Cough [Unknown]
  - Sneezing [Unknown]
  - Hypersensitivity [Unknown]
